FAERS Safety Report 18169273 (Version 1)
Quarter: 2020Q3

REPORT INFORMATION
  Report Type: Spontaneous
  Country: RU (occurrence: RU)
  Receive Date: 20200818
  Receipt Date: 20200818
  Transmission Date: 20201103
  Serious: Yes (Other)
  Sender: FDA-Public Use
  Company Number: RU-ROCHE-2661254

PATIENT
  Age: 40 Year
  Sex: Female

DRUGS (10)
  1. TRASTUZUMAB EMTANSINE [Suspect]
     Active Substance: ADO-TRASTUZUMAB EMTANSINE
     Indication: BREAST CANCER METASTATIC
     Route: 041
     Dates: start: 20200204
  2. DOCETAXEL. [Concomitant]
     Active Substance: DOCETAXEL
     Route: 042
  3. TRASTUZUMAB EMTANSINE [Suspect]
     Active Substance: ADO-TRASTUZUMAB EMTANSINE
     Dosage: 9 COURSES OF TRASTUZUMAB EMTANSINE 3.0 MG / KG IV
     Route: 041
     Dates: start: 20200721
  4. TRASTUZUMAB EMTANSINE [Suspect]
     Active Substance: ADO-TRASTUZUMAB EMTANSINE
     Dosage: 10 COURSES OF TRASTUZUMAB EMTANSINE 3.0 MG / KG IV
     Route: 041
     Dates: start: 20200811
  5. PERTUZUMAB. [Concomitant]
     Active Substance: PERTUZUMAB
     Dosage: (LOADING DOSE 840 MG) IV ON THE 1ST DAY 1 TIME IN 3 WEEKS,6 CYCLES.
     Route: 042
  6. TRASTUZUMAB EMTANSINE [Suspect]
     Active Substance: ADO-TRASTUZUMAB EMTANSINE
     Dosage: 8TH COURSE OF TRASTUZUMAB EMTANSINE 3.0 MG / KG ? 222 MG IV
     Route: 041
     Dates: start: 20200630
  7. CARBOPLATIN. [Concomitant]
     Active Substance: CARBOPLATIN
     Dosage: AUC6 IV ON THE 1ST DAY 1 TIME IN 3 WEEKS.
     Route: 042
  8. TRASTUZUMAB. [Concomitant]
     Active Substance: TRASTUZUMAB
     Dosage: LOADING DOSE 8 MG / KG) IV ON THE 1ST DAY 1 TIME IN 3 WEEKS.
     Route: 042
  9. ZOLADEX [Concomitant]
     Active Substance: GOSERELIN ACETATE
     Dosage: 28 DAYS
     Route: 058
  10. TAMOXIFEN [Concomitant]
     Active Substance: TAMOXIFEN
     Route: 048

REACTIONS (2)
  - Polyneuropathy [Unknown]
  - Hepatic failure [Unknown]
